FAERS Safety Report 9160726 (Version 1)
Quarter: 2013Q1

REPORT INFORMATION
  Report Type: Spontaneous
  Country: US (occurrence: None)
  Receive Date: 20130215
  Receipt Date: 20130215
  Transmission Date: 20140127
  Serious: Yes (Life-Threatening, Disabling)
  Sender: FDA-Public Use
  Company Number: E2B_00000585

PATIENT
  Age: 12 Year
  Sex: Male
  Weight: 47.17 kg

DRUGS (1)
  1. LEVETIRACETAM [Suspect]
     Indication: EPILEPSY
     Dosage: 250 MG IN THE MORNING AND 500 MG IN THE EVENING (DAILY),PER ORAL
     Dates: start: 20121223

REACTIONS (12)
  - Suicide attempt [None]
  - Suicidal ideation [None]
  - Pain in extremity [None]
  - Immobile [None]
  - Panic attack [None]
  - Anger [None]
  - Depression [None]
  - Headache [None]
  - Crying [None]
  - Insomnia [None]
  - Hypophagia [None]
  - Hallucination, auditory [None]
